FAERS Safety Report 4690573-6 (Version None)
Quarter: 2005Q2

REPORT INFORMATION
  Report Type: 
  Country: None (occurrence: None)
  Receive Date: 20050615
  Receipt Date: 20050512
  Transmission Date: 20051028
  Serious: Yes (Hospitalization)
  Sender: FDA-Public Use
  Company Number: US-AMGEN-US134366

PATIENT
  Sex: Male
  Weight: 81.7 kg

DRUGS (6)
  1. PROCRIT [Suspect]
     Indication: PREOPERATIVE CARE
     Dates: start: 20050330, end: 20050421
  2. LISINOPRIL [Concomitant]
     Route: 048
     Dates: start: 20000101
  3. NORVASC [Concomitant]
     Route: 048
     Dates: start: 20030101
  4. LASIX [Concomitant]
     Route: 048
     Dates: start: 20050430
  5. HYDROCODONE BITARTRATE [Concomitant]
     Route: 048
     Dates: start: 20050423, end: 20050430
  6. ULTRAM [Concomitant]
     Route: 048
     Dates: start: 20050430

REACTIONS (1)
  - PULMONARY EMBOLISM [None]
